FAERS Safety Report 14424981 (Version 3)
Quarter: 2018Q1

REPORT INFORMATION
  Report Type: Spontaneous
  Country: GB (occurrence: GB)
  Receive Date: 20180123
  Receipt Date: 20180131
  Transmission Date: 20180509
  Serious: Yes (Other)
  Sender: FDA-Public Use
  Company Number: GB-PFIZER INC-2018025377

PATIENT
  Age: 69 Year
  Sex: Female

DRUGS (15)
  1. MIRTAZAPINE. [Suspect]
     Active Substance: MIRTAZAPINE
     Indication: MENTAL IMPAIRMENT
     Dosage: 45 MG, 1X/DAY (AT NIGHT)
     Dates: start: 201604
  2. VENLAFAXINE HCL [Suspect]
     Active Substance: VENLAFAXINE HYDROCHLORIDE
     Indication: MENTAL IMPAIRMENT
     Dosage: 225 MG, 1X/DAY
     Dates: start: 201311, end: 201412
  3. ARIPIPRAZOLE. [Suspect]
     Active Substance: ARIPIPRAZOLE
     Indication: MENTAL IMPAIRMENT
     Dosage: 10 MG, 1X/DAY
     Dates: start: 201509, end: 201604
  4. OLANZAPINE PFIZER [Suspect]
     Active Substance: OLANZAPINE
     Dosage: 2.5 MG, 1X/DAY
     Dates: start: 2014, end: 201509
  5. VENLAFAXINE HCL [Suspect]
     Active Substance: VENLAFAXINE HYDROCHLORIDE
     Dosage: 75 MG, 1X/DAY
     Dates: start: 2016
  6. OLANZAPINE PFIZER [Suspect]
     Active Substance: OLANZAPINE
     Indication: DEPRESSION
     Dosage: 10 MG, 1X/DAY (AT NIGHT)
     Dates: start: 2012
  7. OLANZAPINE PFIZER [Suspect]
     Active Substance: OLANZAPINE
     Indication: MENTAL IMPAIRMENT
     Dosage: 10 MG, 1X/DAY
     Dates: start: 2013
  8. SERTRALINE HCL [Suspect]
     Active Substance: SERTRALINE HYDROCHLORIDE
     Indication: MENTAL IMPAIRMENT
  9. VENLAFAXINE HCL [Suspect]
     Active Substance: VENLAFAXINE HYDROCHLORIDE
     Indication: DEPRESSION
     Dosage: 150 MG, 1X/DAY
     Dates: start: 2014, end: 201509
  10. ARIPIPRAZOLE. [Suspect]
     Active Substance: ARIPIPRAZOLE
     Indication: DEPRESSION
     Dosage: 15 MG, 1X/DAY
     Dates: start: 201604
  11. RISPERIDONE. [Suspect]
     Active Substance: RISPERIDONE
     Indication: MENTAL IMPAIRMENT
     Dosage: 2.5 MG, 1X/DAY
     Dates: start: 2016
  12. OLANZAPINE PFIZER [Suspect]
     Active Substance: OLANZAPINE
     Dosage: 5 MG, 1X/DAY (AT NIGHT)
     Dates: start: 201610
  13. RISPERIDONE. [Suspect]
     Active Substance: RISPERIDONE
     Indication: DEPRESSION
     Dosage: UNK
     Dates: start: 2016
  14. MIRTAZAPINE. [Suspect]
     Active Substance: MIRTAZAPINE
     Indication: DEPRESSION
     Dosage: 15 MG, 1X/DAY
     Dates: start: 2012, end: 201311
  15. SERTRALINE HCL [Suspect]
     Active Substance: SERTRALINE HYDROCHLORIDE
     Indication: DEPRESSION
     Dosage: 150 MG, 1X/DAY
     Dates: start: 201509

REACTIONS (5)
  - Bundle branch block right [Unknown]
  - Weight increased [Recovered/Resolved]
  - Electrocardiogram QT prolonged [Recovered/Resolved]
  - Palpitations [Unknown]
  - Dyspnoea [Unknown]

NARRATIVE: CASE EVENT DATE: 2012
